FAERS Safety Report 6992124-X (Version None)
Quarter: 2010Q3

REPORT INFORMATION
  Report Type: 
  Country: None (occurrence: None)
  Receive Date: 20100830
  Receipt Date: 20100604
  Transmission Date: 20110219
  Serious: No
  Sender: FDA-Public Use
  Company Number: 2010070840

PATIENT
  Sex: Female

DRUGS (1)
  1. TOVIAZ [Suspect]
     Dosage: 4 MG

REACTIONS (2)
  - ABDOMINAL DISCOMFORT [None]
  - FEELING ABNORMAL [None]
